FAERS Safety Report 7564775-5 (Version None)
Quarter: 2011Q2

REPORT INFORMATION
  Report Type: 
  Country: None (occurrence: None)
  Receive Date: 20110622
  Receipt Date: 20101116
  Transmission Date: 20111010
  Serious: Yes (Death)
  Sender: FDA-Public Use
  Company Number: US-MYLANLABS-2010S1020882

PATIENT
  Age: 31 Year
  Sex: Female

DRUGS (8)
  1. CLOZAPINE [Suspect]
     Route: 048
     Dates: end: 20101104
  2. CLOZAPINE [Suspect]
     Route: 048
     Dates: end: 20101104
  3. RANITIDINE [Concomitant]
  4. NEXIUM [Concomitant]
  5. HYDROCHLOROTHIAZIDE [Concomitant]
  6. SERTRALINE HYDROCHLORIDE [Concomitant]
  7. DOCUSATE SODIUM [Concomitant]
  8. LEVOTHYROXINE SODIUM [Concomitant]

REACTIONS (1)
  - ROAD TRAFFIC ACCIDENT [None]
